FAERS Safety Report 10006332 (Version 1)
Quarter: 2014Q1

REPORT INFORMATION
  Report Type: Spontaneous
  Country: US (occurrence: US)
  Receive Date: 20140313
  Receipt Date: 20140313
  Transmission Date: 20141002
  Serious: No
  Sender: FDA-Public Use
  Company Number: US-BAYER-2014-038333

PATIENT
  Age: 70 Year
  Sex: Female
  Weight: 52 kg

DRUGS (4)
  1. ALEVE CAPLET [Suspect]
     Indication: MYALGIA
     Dosage: 1 DF, PRN
     Route: 048
     Dates: end: 20140307
  2. DIOVAN [VALSARTAN] [Concomitant]
  3. ATENOLOL [Concomitant]
  4. FISH OIL [Concomitant]

REACTIONS (1)
  - Rash [Recovered/Resolved]
